FAERS Safety Report 24424173 (Version 3)
Quarter: 2024Q4

REPORT INFORMATION
  Report Type: Spontaneous
  Country: US (occurrence: US)
  Receive Date: 20241010
  Receipt Date: 20241216
  Transmission Date: 20250115
  Serious: No
  Sender: PFIZER
  Company Number: US-PFIZER INC-202400023740

PATIENT
  Age: 61 Year
  Sex: Female
  Weight: 59.41 kg

DRUGS (20)
  1. CIBINQO [Suspect]
     Active Substance: ABROCITINIB
     Indication: Lichen planopilaris
     Dosage: 100 MG, 1X/DAY, 100 MG PO ONCE DAILY
     Route: 048
     Dates: start: 20240102, end: 20240730
  2. HYDROXYCHLOROQUINE [Concomitant]
     Active Substance: HYDROXYCHLOROQUINE
  3. MINOXIDIL [Concomitant]
     Active Substance: MINOXIDIL
  4. DUTASTERIDE [Concomitant]
     Active Substance: DUTASTERIDE
  5. AJOVY [Concomitant]
     Active Substance: FREMANEZUMAB-VFRM
  6. BUPROPION [Concomitant]
     Active Substance: BUPROPION
  7. CANDESARTAN CILEXETIL [Concomitant]
     Active Substance: CANDESARTAN CILEXETIL
  8. CELECOXIB [Concomitant]
     Active Substance: CELECOXIB
  9. CLOBETASOL [Concomitant]
     Active Substance: CLOBETASOL
  10. TOFACITINIB [Concomitant]
     Active Substance: TOFACITINIB
  11. ESTROGENS [Concomitant]
     Active Substance: ESTROGENS
  12. GAMASTAN [Concomitant]
     Active Substance: HUMAN IMMUNOGLOBULIN G
  13. METHOCARBAMOL [Concomitant]
     Active Substance: METHOCARBAMOL
  14. NITROFURANTOIN [Concomitant]
     Active Substance: NITROFURANTOIN
  15. PANTOPRAZOLE [Concomitant]
     Active Substance: PANTOPRAZOLE
  16. RIZATRIPTAN [Concomitant]
     Active Substance: RIZATRIPTAN
  17. SERTRALINE [Concomitant]
     Active Substance: SERTRALINE HYDROCHLORIDE
  18. KENALOG [Concomitant]
     Active Substance: TRIAMCINOLONE ACETONIDE
  19. VALACYCLOVIR HYDROCHLORIDE [Concomitant]
     Active Substance: VALACYCLOVIR HYDROCHLORIDE
  20. DOXYCYCLINE [Concomitant]
     Active Substance: DOXYCYCLINE

REACTIONS (2)
  - Off label use [Unknown]
  - Drug ineffective for unapproved indication [Unknown]

NARRATIVE: CASE EVENT DATE: 20240101
